FAERS Safety Report 5736441-X (Version None)
Quarter: 2008Q2

REPORT INFORMATION
  Report Type: 
  Country: None (occurrence: None)
  Receive Date: 20080513
  Receipt Date: 20080512
  Transmission Date: 20081010
  Serious: Yes (Hospitalization)
  Sender: FDA-Public Use
  Company Number: B0519794A

PATIENT
  Age: 82 Year
  Sex: Female
  Weight: 36 kg

DRUGS (6)
  1. PAXIL [Suspect]
     Indication: DEPRESSION
     Dosage: 10MG PER DAY
     Route: 048
     Dates: start: 20060317, end: 20060319
  2. LENDORMIN [Concomitant]
     Route: 048
  3. URSO 250 [Concomitant]
     Route: 048
  4. ALDACTONE [Concomitant]
     Route: 048
  5. PLETAL [Concomitant]
     Route: 048
  6. LANSOPRAZOLE [Concomitant]
     Route: 065

REACTIONS (3)
  - ALTERED STATE OF CONSCIOUSNESS [None]
  - HYPONATRAEMIA [None]
  - SOMNOLENCE [None]
